FAERS Safety Report 18941484 (Version 1)
Quarter: 2021Q1

REPORT INFORMATION
  Report Type: Spontaneous
  Country: US (occurrence: US)
  Receive Date: 20210225
  Receipt Date: 20210225
  Transmission Date: 20210420
  Serious: Yes (Other)
  Sender: FDA-Public Use
  Company Number: US-AMNEAL PHARMACEUTICALS-2020-AMRX-02597

PATIENT
  Sex: Female

DRUGS (1)
  1. ACEBUTOLOL HYDROCHLORIDE. [Suspect]
     Active Substance: ACEBUTOLOL HYDROCHLORIDE
     Indication: ARRHYTHMIA
     Dosage: UNK
     Route: 065

REACTIONS (3)
  - Therapeutic product effect incomplete [Unknown]
  - Product substitution issue [Unknown]
  - Arrhythmia [Unknown]
